FAERS Safety Report 5427739-3 (Version None)
Quarter: 2007Q3

REPORT INFORMATION
  Report Type: 
  Country: None (occurrence: None)
  Receive Date: 20070828
  Receipt Date: 20070703
  Transmission Date: 20080115
  Serious: Yes (Other)
  Sender: FDA-Public Use
  Company Number: US-PURDUE-USA_2007_0028510

PATIENT
  Sex: Male
  Weight: 107 kg

DRUGS (9)
  1. OXYCONTIN [Suspect]
     Indication: BACK INJURY
     Dosage: 20 MG, SEE TEXT
     Dates: start: 20001005, end: 20010329
  2. VIOXX [Concomitant]
     Dosage: 50 MG, DAILY
  3. TOPROL-XL [Concomitant]
     Dosage: 100 MG, DAILY
  4. ELAVIL [Concomitant]
     Dosage: 20 MG, HS
  5. SIMVASTATIN [Concomitant]
     Dosage: 10 MG, DAILY
  6. NEURONTIN [Concomitant]
     Dosage: 1600 MG, HS
  7. HYDROCHLOROTHIAZIDE [Concomitant]
     Dosage: 12.5 MG, DAILY
  8. PERCOCET [Concomitant]
     Indication: BREAKTHROUGH PAIN
     Dosage: 7.5 MG, BID PRN
  9. CELEXA [Concomitant]
     Dosage: 20 MG, DAILY

REACTIONS (3)
  - DRUG DEPENDENCE [None]
  - NEURALGIA [None]
  - SUICIDAL IDEATION [None]
